FAERS Safety Report 8509068-4 (Version None)
Quarter: 2012Q3

REPORT INFORMATION
  Report Type: 
  Country: None (occurrence: None)
  Receive Date: 20120702
  Receipt Date: 20120620
  Transmission Date: 20120928
  Serious: Yes (Other)
  Sender: FDA-Public Use
  Company Number: 2012SP034772

PATIENT
  Age: 61 Year
  Sex: Male

DRUGS (5)
  1. LOVASTATIN [Concomitant]
  2. PEG-INTRON [Suspect]
     Indication: HEPATITIS C
     Dosage: 100 MCG
     Dates: start: 20120510
  3. LOSARTAN POTASSIUM [Concomitant]
  4. LEVOTHYROXINE SODIUM [Concomitant]
  5. RIBAVIRIN [Suspect]
     Indication: HEPATITIS C
     Dosage: 1 DF; Q12H
     Dates: start: 20120615

REACTIONS (6)
  - FULL BLOOD COUNT ABNORMAL [None]
  - ASTHENIA [None]
  - BLOOD THYROID STIMULATING HORMONE INCREASED [None]
  - DECREASED APPETITE [None]
  - MUSCULAR WEAKNESS [None]
  - HAEMOGLOBIN DECREASED [None]
